FAERS Safety Report 8769748 (Version 1)
Quarter: 2012Q4

REPORT INFORMATION
  Report Type: 
  Country: US (occurrence: US)
  Receive Date: 20120905
  Receipt Date: 20120905
  Transmission Date: 20130627
  Serious: No
  Sender: FDA-Public Use
  Company Number: US-BAYER-2012-089103

PATIENT
  Age: 85 Year
  Sex: Female
  Weight: 67 kg

DRUGS (11)
  1. ALEVE CAPLET/TABLET,MIDOL EXTENDED RELIEF CAPLET [Suspect]
     Indication: ARTHRITIS
     Dosage: 2 DF, PRN
     Route: 048
     Dates: start: 2011
  2. METOPROLOL [Concomitant]
  3. HYDROCHLOROTHIAZIDE [Concomitant]
  4. BONIVA [Concomitant]
  5. CENTRUM [Concomitant]
  6. AMADEX [Concomitant]
  7. CALCIUM [Concomitant]
  8. VITAMIN C [Concomitant]
  9. OSTEO BI-FLEX [Concomitant]
  10. FISH OIL [Concomitant]
  11. AMLODIPINE [Concomitant]

REACTIONS (1)
  - Nausea [Recovered/Resolved]
